FAERS Safety Report 19133733 (Version 2)
Quarter: 2021Q2

REPORT INFORMATION
  Report Type: Report from Study
  Country: US (occurrence: US)
  Receive Date: 20210414
  Receipt Date: 20210430
  Transmission Date: 20210717
  Serious: No
  Sender: FDA-Public Use
  Company Number: US-EMD SERONO-9230763

PATIENT
  Age: 36 Year
  Sex: Female

DRUGS (2)
  1. REBIF [Suspect]
     Active Substance: INTERFERON BETA-1A
     Indication: MULTIPLE SCLEROSIS
     Dosage: REBIJECT II
     Route: 058
     Dates: start: 20201020, end: 20201211
  2. REBIF [Suspect]
     Active Substance: INTERFERON BETA-1A
     Dosage: REBIJECT II
     Route: 058
     Dates: start: 20210412

REACTIONS (5)
  - Feeling abnormal [Unknown]
  - Anger [Unknown]
  - Product dose omission issue [Unknown]
  - Depressed mood [Unknown]
  - Product availability issue [Unknown]

NARRATIVE: CASE EVENT DATE: 20201212
